FAERS Safety Report 14996361 (Version 1)
Quarter: 2018Q2

REPORT INFORMATION
  Report Type: Report from Study
  Country: PH (occurrence: PH)
  Receive Date: 20180611
  Receipt Date: 20180611
  Transmission Date: 20180711
  Serious: Yes (Life-Threatening)
  Sender: FDA-Public Use
  Company Number: PH-OTSUKA-2018_014018

PATIENT
  Age: 3 Year
  Sex: Male

DRUGS (1)
  1. ARIPIPRAZOLE. [Suspect]
     Active Substance: ARIPIPRAZOLE
     Indication: AUTISM SPECTRUM DISORDER
     Dosage: 5 MG, HALF TABLET A DAY
     Route: 065
     Dates: start: 20180409, end: 20180411

REACTIONS (7)
  - Feeling abnormal [Recovered/Resolved]
  - Drug administered to patient of inappropriate age [Unknown]
  - Product use in unapproved indication [Unknown]
  - Abnormal behaviour [Recovered/Resolved]
  - Acrophobia [Recovered/Resolved]
  - Fear [Recovered/Resolved]
  - Wrong technique in product usage process [Unknown]

NARRATIVE: CASE EVENT DATE: 20180409
